FAERS Safety Report 4285357-7 (Version None)
Quarter: 2004Q1

REPORT INFORMATION
  Report Type: 
  Country: None (occurrence: None)
  Receive Date: 20040202
  Receipt Date: 20040122
  Transmission Date: 20041129
  Serious: Yes (Death)
  Sender: FDA-Public Use
  Company Number: A044-002-004800

PATIENT
  Age: 73 Year
  Sex: Male
  Weight: 75 kg

DRUGS (4)
  1. ARICEPT [Suspect]
     Indication: DEMENTIA
     Dosage: 5 MG, 1 IN 1 D, ORAL
     Route: 048
     Dates: start: 20031029
  2. RYTHMOL [Concomitant]
  3. NISISCO (CO-DIOVAN) [Concomitant]
  4. PROZAC [Concomitant]

REACTIONS (3)
  - PAROXYSMAL ARRHYTHMIA [None]
  - PULMONARY EMBOLISM [None]
  - SUDDEN DEATH [None]
